FAERS Safety Report 5362846-5 (Version None)
Quarter: 2007Q2

REPORT INFORMATION
  Report Type: 
  Country: None (occurrence: None)
  Receive Date: 20070612
  Receipt Date: 20070608
  Transmission Date: 20071010
  Serious: Yes (Death)
  Sender: FDA-Public Use
  Company Number: THQ2007A00485

PATIENT
  Age: 49 Year
  Sex: Male

DRUGS (5)
  1. ACTOS [Suspect]
     Indication: DIABETES MELLITUS
     Dosage: 15 MG (15 MG, 1 IN 1 D) PER ORAL
     Route: 048
     Dates: start: 20030516, end: 20031210
  2. AMARYL [Concomitant]
  3. THIOCTACID (THIOCTIC ACID) [Concomitant]
  4. PENTOXIFYLLINE [Concomitant]
  5. SACCHAROMYCES MEDICINALIS [Concomitant]

REACTIONS (3)
  - BLOOD CHOLESTEROL INCREASED [None]
  - BLOOD GLUCOSE INCREASED [None]
  - SUDDEN DEATH [None]
